FAERS Safety Report 10993305 (Version 2)
Quarter: 2015Q2

REPORT INFORMATION
  Report Type: Spontaneous
  Country: US (occurrence: US)
  Receive Date: 20150407
  Receipt Date: 20150429
  Transmission Date: 20150821
  Serious: Yes (Hospitalization)
  Sender: FDA-Public Use
  Company Number: US-ASTRAZENECA-2015SE29907

PATIENT
  Age: 971 Month
  Sex: Female
  Weight: 67.1 kg

DRUGS (2)
  1. SYMBICORT [Suspect]
     Active Substance: BUDESONIDE\FORMOTEROL FUMARATE DIHYDRATE
     Indication: CHRONIC OBSTRUCTIVE PULMONARY DISEASE
     Dosage: 160 4.5 MCG 2 PUFFS, TWO TIMES A DAY
     Route: 055
  2. SYMBICORT [Suspect]
     Active Substance: BUDESONIDE\FORMOTEROL FUMARATE DIHYDRATE
     Indication: CHRONIC OBSTRUCTIVE PULMONARY DISEASE
     Dosage: 160 4.5 MCG 2 PUFFS, TWO TIMES A DAY
     Route: 055
     Dates: start: 201403

REACTIONS (6)
  - Glossodynia [Unknown]
  - Dyspnoea [Unknown]
  - Intentional product misuse [Unknown]
  - Influenza [Unknown]
  - Oral candidiasis [Unknown]
  - Oral pain [Unknown]

NARRATIVE: CASE EVENT DATE: 201405
